FAERS Safety Report 22120874 (Version 1)
Quarter: 2023Q1

REPORT INFORMATION
  Report Type: Spontaneous
  Country: US (occurrence: US)
  Receive Date: 20230321
  Receipt Date: 20230321
  Transmission Date: 20230418
  Serious: No
  Sender: FDA-Public Use
  Company Number: US-BRISTOL-MYERS SQUIBB COMPANY-2023-040257

PATIENT

DRUGS (2)
  1. ORENCIA [Suspect]
     Active Substance: ABATACEPT
     Indication: Product used for unknown indication
     Dosage: SINGLE DOSE VIALS
  2. ORENCIA [Suspect]
     Active Substance: ABATACEPT
     Dosage: SINGLE DOSE VIALS

REACTIONS (4)
  - Product storage error [Unknown]
  - Product deposit [Unknown]
  - Product contamination physical [Unknown]
  - Product reconstitution quality issue [Unknown]
